FAERS Safety Report 15068331 (Version 1)
Quarter: 2018Q2

REPORT INFORMATION
  Report Type: Spontaneous
  Country: CZ (occurrence: CZ)
  Receive Date: 20180626
  Receipt Date: 20180626
  Transmission Date: 20180711
  Serious: Yes (Hospitalization, Disabling, Other)
  Sender: FDA-Public Use
  Company Number: CZ-SA-2018SA151233

PATIENT
  Age: 69 Year
  Sex: Male

DRUGS (9)
  1. FOLINIC ACID [Suspect]
     Active Substance: LEUCOVORIN
     Indication: METASTASES TO LIVER
  2. INSULIN [Concomitant]
     Active Substance: INSULIN NOS
  3. OXALIPLATIN. [Suspect]
     Active Substance: OXALIPLATIN
     Indication: COLORECTAL ADENOCARCINOMA
     Dosage: UNK
     Dates: start: 20160113
  4. OXALIPLATIN. [Suspect]
     Active Substance: OXALIPLATIN
     Indication: METASTASES TO LIVER
  5. CETUXIMAB. [Suspect]
     Active Substance: CETUXIMAB
     Indication: METASTASES TO LIVER
     Dosage: UNK
  6. FLUOROURACIL. [Suspect]
     Active Substance: FLUOROURACIL
     Indication: METASTASES TO LIVER
     Dosage: UNK
     Dates: start: 20160113
  7. FOLINIC ACID [Suspect]
     Active Substance: LEUCOVORIN
     Indication: COLORECTAL ADENOCARCINOMA
     Dosage: UNK
     Dates: start: 20160113
  8. CETUXIMAB. [Suspect]
     Active Substance: CETUXIMAB
     Indication: COLORECTAL ADENOCARCINOMA
  9. FLUOROURACIL. [Suspect]
     Active Substance: FLUOROURACIL
     Indication: COLORECTAL ADENOCARCINOMA

REACTIONS (8)
  - Hypomagnesaemia [Recovered/Resolved]
  - Paraesthesia [Recovered/Resolved]
  - Skin toxicity [Recovered/Resolved]
  - Femoral neck fracture [Recovered/Resolved]
  - Rash [Unknown]
  - Neutropenia [Recovered/Resolved]
  - Dermatitis acneiform [Recovered/Resolved]
  - Skin fissures [Unknown]

NARRATIVE: CASE EVENT DATE: 2016
